FAERS Safety Report 8304967-0 (Version None)
Quarter: 2012Q2

REPORT INFORMATION
  Report Type: 
  Country: None (occurrence: None)
  Receive Date: 20120423
  Receipt Date: 20120412
  Transmission Date: 20120825
  Serious: Yes (Hospitalization)
  Sender: FDA-Public Use
  Company Number: NL-MEDIMMUNE-MEDI-0013823

PATIENT
  Sex: Male
  Weight: 7.36 kg

DRUGS (2)
  1. SYNAGIS [Suspect]
     Indication: PREMATURE BABY
     Route: 030
     Dates: start: 20110902, end: 20110902
  2. SYNAGIS [Suspect]
     Route: 030
     Dates: start: 20110930, end: 20120412

REACTIONS (2)
  - HYPOPHAGIA [None]
  - DECREASED APPETITE [None]
